FAERS Safety Report 24112908 (Version 1)
Quarter: 2024Q3

REPORT INFORMATION
  Report Type: Other
  Country: GB (occurrence: GB)
  Receive Date: 20240719
  Receipt Date: 20240719
  Transmission Date: 20241017
  Serious: Yes (Life-Threatening, Other)
  Sender: GE HEALTHCARE
  Company Number: None

PATIENT
  Age: 73 Year
  Sex: Female

DRUGS (2)
  1. DATSCAN [Suspect]
     Active Substance: IODINE\IOFLUPANE I-123
     Indication: Positron emission tomogram
     Dosage: UNK, TOTAL
     Route: 065
     Dates: start: 202109, end: 202109
  2. VENLAFAXINE [Suspect]
     Active Substance: VENLAFAXINE HYDROCHLORIDE
     Indication: Depression
     Dosage: 225 MG, QD
     Dates: start: 201907

REACTIONS (2)
  - Drug interaction [Not Recovered/Not Resolved]
  - False positive radioisotope investigation result [Recovered/Resolved]

NARRATIVE: CASE EVENT DATE: 20210901
